FAERS Safety Report 20307643 (Version 3)
Quarter: 2022Q1

REPORT INFORMATION
  Report Type: Spontaneous
  Country: US (occurrence: None)
  Receive Date: 20220107
  Receipt Date: 20220216
  Transmission Date: 20220423
  Serious: No
  Sender: FDA-Public Use
  Company Number: 2021A889686

PATIENT
  Age: 26943 Day
  Sex: Female
  Weight: 72.6 kg

DRUGS (1)
  1. SYMBICORT [Suspect]
     Active Substance: BUDESONIDE\FORMOTEROL FUMARATE DIHYDRATE
     Indication: Chronic obstructive pulmonary disease
     Dosage: 160/4.5 UG/D ,TWO TIMES A DAY
     Route: 055
     Dates: start: 20211218

REACTIONS (3)
  - Product taste abnormal [Unknown]
  - Chest discomfort [Unknown]
  - Wrong technique in device usage process [Unknown]

NARRATIVE: CASE EVENT DATE: 20211218
